FAERS Safety Report 8309432-2 (Version None)
Quarter: 2012Q2

REPORT INFORMATION
  Report Type: 
  Country: None (occurrence: None)
  Receive Date: 20120420
  Receipt Date: 20120410
  Transmission Date: 20120825
  Serious: Yes (Other)
  Sender: FDA-Public Use
  Company Number: AUR-APL-2012-01533

PATIENT
  Sex: Female

DRUGS (2)
  1. CITALOPRAM HYDROBROMIDE [Suspect]
     Indication: PRODUCT USED FOR UNKNOWN INDICATION
  2. ERYTHROMYCIN [Suspect]
     Indication: GASTROINTESTINAL INFECTION

REACTIONS (4)
  - DRUG INTERACTION [None]
  - HYPOXIA [None]
  - DRUG INEFFECTIVE [None]
  - HEART RATE INCREASED [None]
